FAERS Safety Report 4375928-1 (Version None)
Quarter: 2004Q2

REPORT INFORMATION
  Report Type: 
  Country: None (occurrence: None)
  Receive Date: 20040607
  Receipt Date: 20040526
  Transmission Date: 20050107
  Serious: Yes (Life-Threatening)
  Sender: FDA-Public Use
  Company Number: HQWYE119026MAY04

PATIENT
  Sex: Male

DRUGS (1)
  1. ANCARON (AMIODARONE, TABLET) [Suspect]
     Route: 048

REACTIONS (1)
  - THYROID GLAND CANCER [None]
